FAERS Safety Report 25641708 (Version 3)
Quarter: 2025Q4

REPORT INFORMATION
  Report Type: Spontaneous
  Country: JP (occurrence: JP)
  Receive Date: 20250804
  Receipt Date: 20251001
  Transmission Date: 20260117
  Serious: Yes (Death)
  Sender: ELI LILLY AND COMPANY
  Company Number: JP-ELI_LILLY_AND_COMPANY-JP202507030415

PATIENT
  Age: 74 Year
  Sex: Male
  Weight: 40 kg

DRUGS (3)
  1. JAYPIRCA [Suspect]
     Active Substance: PIRTOBRUTINIB
     Indication: Mantle cell lymphoma recurrent
     Dosage: 200 MG, DAILY
     Route: 048
     Dates: start: 20250410, end: 20250527
  2. LANSOPRAZOLE [Concomitant]
     Active Substance: LANSOPRAZOLE
     Indication: Prophylaxis
     Dosage: 30 MG
     Route: 048
     Dates: start: 20250328, end: 20250527
  3. FUROSEMIDE [Concomitant]
     Active Substance: FUROSEMIDE
     Indication: Renal impairment
     Dosage: 20 MG
     Route: 048
     Dates: start: 20250328, end: 20250527

REACTIONS (4)
  - Cardio-respiratory arrest [Fatal]
  - Cyanosis [Unknown]
  - Malaise [Recovering/Resolving]
  - Oedema peripheral [Unknown]

NARRATIVE: CASE EVENT DATE: 20250410
